FAERS Safety Report 20756092 (Version 1)
Quarter: 2022Q2

REPORT INFORMATION
  Report Type: Spontaneous
  Country: US (occurrence: None)
  Receive Date: 20220426
  Receipt Date: 20220426
  Transmission Date: 20220721
  Serious: Yes (Hospitalization)
  Sender: FDA-Public Use
  Company Number: None

PATIENT
  Age: 29 Year
  Sex: Female

DRUGS (11)
  1. SILDENAFIL [Suspect]
     Active Substance: SILDENAFIL
     Indication: Pulmonary arterial hypertension
     Route: 048
     Dates: start: 20210928
  2. AMBRISENTAN [Concomitant]
     Active Substance: AMBRISENTAN
  3. DIGOXIN [Concomitant]
     Active Substance: DIGOXIN
  4. FUROSEMIDE [Concomitant]
     Active Substance: FUROSEMIDE
  5. IMURAN [Concomitant]
     Active Substance: AZATHIOPRINE
  6. KLONOPIN [Concomitant]
     Active Substance: CLONAZEPAM
  7. OPSUMIT [Concomitant]
     Active Substance: MACITENTAN
  8. PEPCID [Concomitant]
     Active Substance: FAMOTIDINE
  9. POTASSIUM CITRATE [Concomitant]
     Active Substance: POTASSIUM CITRATE
  10. PREDNISONE [Concomitant]
     Active Substance: PREDNISONE
  11. TOPAMAX [Concomitant]
     Active Substance: TOPIRAMATE

REACTIONS (1)
  - Haemoptysis [None]

NARRATIVE: CASE EVENT DATE: 20220418
